FAERS Safety Report 15633592 (Version 1)
Quarter: 2018Q4

REPORT INFORMATION
  Report Type: Report from Study
  Country: US (occurrence: US)
  Receive Date: 20181119
  Receipt Date: 20181119
  Transmission Date: 20190205
  Serious: Yes (Other)
  Sender: FDA-Public Use
  Company Number: US-SA-2018SA310641

PATIENT
  Age: 45 Year
  Sex: Male
  Weight: 184 kg

DRUGS (1)
  1. INSULIN GLARGINE [Suspect]
     Active Substance: INSULIN GLARGINE
     Dosage: 80 U, BID
     Dates: start: 20181101, end: 20181106

REACTIONS (5)
  - Acute myocardial infarction [Recovered/Resolved]
  - Tachycardia [Recovered/Resolved]
  - Chest pain [Recovered/Resolved]
  - Hypertension [Recovered/Resolved]
  - Inappropriate schedule of product administration [Unknown]

NARRATIVE: CASE EVENT DATE: 20181101
